FAERS Safety Report 6945750-8 (Version None)
Quarter: 2010Q3

REPORT INFORMATION
  Report Type: 
  Country: None (occurrence: None)
  Receive Date: 20100827
  Receipt Date: 20100826
  Transmission Date: 20110219
  Serious: Yes (Life-Threatening, Hospitalization, Other)
  Sender: FDA-Public Use
  Company Number: A0872190A

PATIENT
  Age: 65 Year
  Sex: Female
  Weight: 70.5 kg

DRUGS (2)
  1. PROMACTA [Suspect]
     Indication: IDIOPATHIC THROMBOCYTOPENIC PURPURA
     Route: 048
     Dates: start: 20091101
  2. STEROIDS [Concomitant]

REACTIONS (7)
  - ASPIRATION BONE MARROW [None]
  - BIOPSY BONE MARROW [None]
  - FATIGUE [None]
  - LYMPHADENOPATHY [None]
  - NIGHT SWEATS [None]
  - NON-HODGKIN'S LYMPHOMA [None]
  - PYREXIA [None]
